FAERS Safety Report 18486136 (Version 1)
Quarter: 2020Q4

REPORT INFORMATION
  Report Type: Spontaneous
  Country: US (occurrence: US)
  Receive Date: 20201110
  Receipt Date: 20201110
  Transmission Date: 20210114
  Serious: No
  Sender: FDA-Public Use
  Company Number: None

PATIENT
  Age: 76 Year
  Sex: Male

DRUGS (1)
  1. BCG (MYCOBAX) [Suspect]
     Active Substance: BCG VACCINE

REACTIONS (5)
  - Hypokalaemia [None]
  - Hypophosphataemia [None]
  - Pyrexia [None]
  - Hyponatraemia [None]
  - Hepatic enzyme increased [None]

NARRATIVE: CASE EVENT DATE: 20200817
